FAERS Safety Report 9675091 (Version 1)
Quarter: 2013Q4

REPORT INFORMATION
  Report Type: Spontaneous
  Country: IN (occurrence: IN)
  Receive Date: 20131107
  Receipt Date: 20131107
  Transmission Date: 20140711
  Serious: Yes (Hospitalization)
  Sender: FDA-Public Use
  Company Number: IN-009507513-1311IND000915

PATIENT
  Age: 45 Year
  Sex: Female

DRUGS (2)
  1. JANUMET [Suspect]
     Dosage: UNK UNK, BID
     Route: 048
     Dates: end: 201310
  2. INSULIN [Concomitant]
     Dosage: UNK
     Dates: end: 201310

REACTIONS (5)
  - Pyrexia [Not Recovered/Not Resolved]
  - Movement disorder [Not Recovered/Not Resolved]
  - Blood glucose increased [Not Recovered/Not Resolved]
  - Vomiting [Not Recovered/Not Resolved]
  - Blood pressure increased [Unknown]
